FAERS Safety Report 8138948-7 (Version None)
Quarter: 2012Q1

REPORT INFORMATION
  Report Type: 
  Country: None (occurrence: None)
  Receive Date: 20120215
  Receipt Date: 20120208
  Transmission Date: 20120608
  Serious: Yes (Hospitalization, Other)
  Sender: FDA-Public Use
  Company Number: FR-ABBOTT-11P-056-0873212-00

PATIENT
  Sex: Female

DRUGS (8)
  1. ALLOPURINOL [Concomitant]
     Indication: PRODUCT USED FOR UNKNOWN INDICATION
     Route: 048
     Dates: end: 20110610
  2. ACARBOSE [Suspect]
     Indication: TYPE 2 DIABETES MELLITUS
     Route: 048
     Dates: end: 20110605
  3. BISOPROLOL FUMARATE [Concomitant]
     Indication: PRODUCT USED FOR UNKNOWN INDICATION
     Route: 048
  4. FENOFIBRATE [Suspect]
     Indication: HYPERCHOLESTEROLAEMIA
     Route: 048
     Dates: end: 20110605
  5. CORDARONE [Concomitant]
     Indication: PRODUCT USED FOR UNKNOWN INDICATION
     Route: 048
  6. ATACAND [Suspect]
     Indication: PRODUCT USED FOR UNKNOWN INDICATION
     Route: 048
     Dates: end: 20110605
  7. LASIX [Suspect]
     Indication: HYPERTENSION
     Route: 048
     Dates: end: 20110608
  8. ACENOCOUMAROL [Concomitant]
     Indication: PRODUCT USED FOR UNKNOWN INDICATION
     Route: 048
     Dates: end: 20110608

REACTIONS (15)
  - RENAL FAILURE ACUTE [None]
  - RASH [None]
  - HYPERSENSITIVITY [None]
  - EOSINOPHILIA [None]
  - FLUID OVERLOAD [None]
  - BLOOD SODIUM INCREASED [None]
  - METABOLIC ACIDOSIS [None]
  - BLOOD CREATININE INCREASED [None]
  - HYPOVOLAEMIA [None]
  - RENAL TUBULAR DISORDER [None]
  - DIABETIC NEPHROPATHY [None]
  - ELECTROLYTE IMBALANCE [None]
  - TOXIC SKIN ERUPTION [None]
  - CARDIAC FAILURE [None]
  - COAGULATION TIME PROLONGED [None]
